FAERS Safety Report 7977150-6 (Version None)
Quarter: 2011Q4

REPORT INFORMATION
  Report Type: 
  Country: None (occurrence: None)
  Receive Date: 20111213
  Receipt Date: 20111108
  Transmission Date: 20120403
  Serious: No
  Sender: FDA-Public Use
  Company Number: US-AMGEN-USASP2011058814

PATIENT
  Age: 65 Year
  Sex: Male

DRUGS (1)
  1. ENBREL [Suspect]
     Indication: RHEUMATOID ARTHRITIS
     Dosage: 25 MG, QWK
     Dates: start: 19980101

REACTIONS (5)
  - JOINT STIFFNESS [None]
  - INFLAMMATION [None]
  - INJECTION SITE DISCOMFORT [None]
  - PLANTAR FASCIITIS [None]
  - CHEST PAIN [None]
